FAERS Safety Report 4758027-6 (Version None)
Quarter: 2005Q3

REPORT INFORMATION
  Report Type: 
  Country: None (occurrence: None)
  Receive Date: 20050826
  Receipt Date: 20050502
  Transmission Date: 20060218
  Serious: No
  Sender: FDA-Public Use
  Company Number: WAES 0501USA03609

PATIENT
  Age: 59 Year
  Sex: Female

DRUGS (3)
  1. ZETIA [Suspect]
     Indication: BLOOD CHOLESTEROL INCREASED
     Dosage: 10 MG/DAILY/PO
     Route: 048
     Dates: start: 20041001
  2. LOPID [Concomitant]
  3. XANAX [Concomitant]

REACTIONS (3)
  - CHRONIC FATIGUE SYNDROME [None]
  - DRUG INEFFECTIVE [None]
  - FIBROMYALGIA [None]
